FAERS Safety Report 7995137-4 (Version None)
Quarter: 2011Q4

REPORT INFORMATION
  Report Type: 
  Country: None (occurrence: None)
  Receive Date: 20111220
  Receipt Date: 20111219
  Transmission Date: 20120403
  Serious: Yes (Hospitalization)
  Sender: FDA-Public Use
  Company Number: US-GLAXOSMITHKLINE-A0958665A

PATIENT
  Age: 59 Year
  Sex: Female
  Weight: 54 kg

DRUGS (2)
  1. DOBUTAMINE HCL [Concomitant]
     Route: 042
  2. FLOLAN [Suspect]
     Indication: HEART DISEASE CONGENITAL
     Dosage: 32NGKM UNKNOWN
     Route: 042
     Dates: start: 20110511

REACTIONS (2)
  - OFF LABEL USE [None]
  - PULMONARY ARTERY THROMBOSIS [None]
